FAERS Safety Report 17144016 (Version 1)
Quarter: 2019Q4

REPORT INFORMATION
  Report Type: Report from Study
  Country: MX (occurrence: MX)
  Receive Date: 20191212
  Receipt Date: 20191212
  Transmission Date: 20200122
  Serious: Yes (Other)
  Sender: FDA-Public Use
  Company Number: NVSC2019MX066913

PATIENT
  Sex: Male
  Weight: 80 kg

DRUGS (1)
  1. GALVUS MET [Suspect]
     Active Substance: METFORMIN HYDROCHLORIDE\VILDAGLIPTIN
     Indication: BLOOD GLUCOSE INCREASED
     Dosage: 1 DF (METFORMIN 1000MG, VILDAGLIPTIN 50MG), BID
     Route: 048
     Dates: start: 2018

REACTIONS (3)
  - Blood glucose increased [Unknown]
  - Diabetes mellitus inadequate control [Unknown]
  - Diabetic metabolic decompensation [Unknown]

NARRATIVE: CASE EVENT DATE: 2018
